FAERS Safety Report 26192880 (Version 1)
Quarter: 2025Q4

REPORT INFORMATION
  Report Type: Spontaneous
  Country: BR (occurrence: BR)
  Receive Date: 20251223
  Receipt Date: 20251223
  Transmission Date: 20260118
  Serious: Yes (Other)
  Sender: ELI LILLY AND COMPANY
  Company Number: BR-ELI_LILLY_AND_COMPANY-BR202512021702

PATIENT
  Age: 47 Year
  Sex: Female

DRUGS (24)
  1. MOUNJARO [Suspect]
     Active Substance: TIRZEPATIDE
     Indication: Metabolic syndrome
     Dosage: 2.5 MG, UNKNOWN
     Route: 065
  2. MOUNJARO [Suspect]
     Active Substance: TIRZEPATIDE
     Indication: Metabolic syndrome
     Dosage: 2.5 MG, UNKNOWN
     Route: 065
  3. MOUNJARO [Suspect]
     Active Substance: TIRZEPATIDE
     Indication: Metabolic syndrome
     Dosage: 2.5 MG, UNKNOWN
     Route: 065
  4. MOUNJARO [Suspect]
     Active Substance: TIRZEPATIDE
     Indication: Metabolic syndrome
     Dosage: 2.5 MG, UNKNOWN
     Route: 065
  5. MOUNJARO [Suspect]
     Active Substance: TIRZEPATIDE
     Indication: Lipodystrophy acquired
  6. MOUNJARO [Suspect]
     Active Substance: TIRZEPATIDE
     Indication: Lipodystrophy acquired
  7. MOUNJARO [Suspect]
     Active Substance: TIRZEPATIDE
     Indication: Lipodystrophy acquired
  8. MOUNJARO [Suspect]
     Active Substance: TIRZEPATIDE
     Indication: Lipodystrophy acquired
  9. MOUNJARO [Suspect]
     Active Substance: TIRZEPATIDE
     Indication: Spondylitis
  10. MOUNJARO [Suspect]
     Active Substance: TIRZEPATIDE
     Indication: Spondylitis
  11. MOUNJARO [Suspect]
     Active Substance: TIRZEPATIDE
     Indication: Spondylitis
  12. MOUNJARO [Suspect]
     Active Substance: TIRZEPATIDE
     Indication: Spondylitis
  13. MOUNJARO [Suspect]
     Active Substance: TIRZEPATIDE
     Indication: Metabolic syndrome
     Dosage: 5 MG, UNKNOWN
     Route: 065
     Dates: start: 202507
  14. MOUNJARO [Suspect]
     Active Substance: TIRZEPATIDE
     Indication: Metabolic syndrome
     Dosage: 5 MG, UNKNOWN
     Route: 065
     Dates: start: 202507
  15. MOUNJARO [Suspect]
     Active Substance: TIRZEPATIDE
     Indication: Metabolic syndrome
     Dosage: 5 MG, UNKNOWN
     Route: 065
     Dates: start: 202507
  16. MOUNJARO [Suspect]
     Active Substance: TIRZEPATIDE
     Indication: Metabolic syndrome
     Dosage: 5 MG, UNKNOWN
     Route: 065
     Dates: start: 202507
  17. MOUNJARO [Suspect]
     Active Substance: TIRZEPATIDE
     Indication: Lipodystrophy acquired
  18. MOUNJARO [Suspect]
     Active Substance: TIRZEPATIDE
     Indication: Lipodystrophy acquired
  19. MOUNJARO [Suspect]
     Active Substance: TIRZEPATIDE
     Indication: Lipodystrophy acquired
  20. MOUNJARO [Suspect]
     Active Substance: TIRZEPATIDE
     Indication: Lipodystrophy acquired
  21. MOUNJARO [Suspect]
     Active Substance: TIRZEPATIDE
     Indication: Spondylitis
  22. MOUNJARO [Suspect]
     Active Substance: TIRZEPATIDE
     Indication: Spondylitis
  23. MOUNJARO [Suspect]
     Active Substance: TIRZEPATIDE
     Indication: Spondylitis
  24. MOUNJARO [Suspect]
     Active Substance: TIRZEPATIDE
     Indication: Spondylitis

REACTIONS (4)
  - Hepatic enzyme increased [Unknown]
  - Cholelithiasis [Unknown]
  - Drug titration error [Unknown]
  - Off label use [Unknown]

NARRATIVE: CASE EVENT DATE: 20250701
